FAERS Safety Report 6423974-6 (Version None)
Quarter: 2009Q4

REPORT INFORMATION
  Report Type: 
  Country: None (occurrence: None)
  Receive Date: 20091102
  Receipt Date: 20091022
  Transmission Date: 20100525
  Serious: Yes (Other)
  Sender: FDA-Public Use
  Company Number: PHHY2009DE19041

PATIENT
  Sex: Male

DRUGS (5)
  1. RASILEZ [Suspect]
     Dosage: 150 MG, QD
     Route: 048
     Dates: end: 20090401
  2. RASILEZ [Suspect]
     Dosage: 150 MG, BID
     Route: 048
     Dates: start: 20090401, end: 20090526
  3. RASILEZ [Suspect]
     Dosage: 300 MG, QD
     Route: 048
     Dates: start: 20090527
  4. BLOPRESS [Concomitant]
     Indication: HYPERTENSION
     Dosage: 16 MG, QD
     Route: 048
  5. BLOPRESS [Concomitant]
     Dosage: 24 MG/DAY
     Route: 048

REACTIONS (4)
  - ANGINA PECTORIS [None]
  - ARRHYTHMIA SUPRAVENTRICULAR [None]
  - ATRIAL FIBRILLATION [None]
  - BLOOD PRESSURE INCREASED [None]
